FAERS Safety Report 10977760 (Version 1)
Quarter: 2015Q2

REPORT INFORMATION
  Report Type: Report from Study
  Country: FR (occurrence: FR)
  Receive Date: 20150402
  Receipt Date: 20150402
  Transmission Date: 20150821
  Serious: Yes (Hospitalization)
  Sender: FDA-Public Use
  Company Number: FR-GLAXOSMITHKLINE-FR2015GSK038044

PATIENT
  Age: 50 Year
  Sex: Male
  Weight: 62 kg

DRUGS (9)
  1. RILMENIDINE [Concomitant]
     Active Substance: RILMENIDINE
     Dosage: 1 MG, UNK
     Dates: start: 20140925
  2. ALPRAZOLAM. [Concomitant]
     Active Substance: ALPRAZOLAM
     Dosage: UNK
  3. METOPIMAZINE [Concomitant]
     Active Substance: METOPIMAZINE
     Dosage: UNK
     Dates: start: 20150220
  4. PAZOPANIB [Suspect]
     Active Substance: PAZOPANIB
     Dosage: 800 MG, QD
     Dates: start: 20150305, end: 20150318
  5. NEBIVOLOL [Concomitant]
     Active Substance: NEBIVOLOL
     Dosage: 5 MG, QD
     Dates: start: 20141031
  6. METOCLOPRAMIDE. [Concomitant]
     Active Substance: METOCLOPRAMIDE
     Dosage: UNK
     Dates: start: 20150221
  7. AGOMELATINE [Concomitant]
     Active Substance: AGOMELATINE
     Dosage: UNK
  8. TROSPIUM [Concomitant]
     Active Substance: TROSPIUM
     Dosage: UNK
  9. OXYCODONE [Concomitant]
     Active Substance: OXYCODONE
     Dosage: UNK
     Dates: start: 20150220

REACTIONS (3)
  - Diarrhoea [Not Recovered/Not Resolved]
  - Dehydration [Not Recovered/Not Resolved]
  - Nausea [Not Recovered/Not Resolved]

NARRATIVE: CASE EVENT DATE: 20150317
